FAERS Safety Report 20791374 (Version 1)
Quarter: 2022Q2

REPORT INFORMATION
  Report Type: Report from Study
  Country: CA (occurrence: CA)
  Receive Date: 20220505
  Receipt Date: 20220505
  Transmission Date: 20220721
  Serious: Yes (Hospitalization, Other)
  Sender: FDA-Public Use
  Company Number: CA-JNJFOC-20220110193

PATIENT
  Age: 62 Year
  Sex: Female
  Weight: 64 kg

DRUGS (1)
  1. REMICADE [Suspect]
     Active Substance: INFLIXIMAB
     Indication: Crohn^s disease
     Dosage: PATIENT RECEIVED LAST REMICADE INFUSION ON -JAN-2022
     Route: 042
     Dates: start: 20080129, end: 20220112

REACTIONS (2)
  - Blood electrolytes decreased [Recovering/Resolving]
  - Chemotherapy [Unknown]

NARRATIVE: CASE EVENT DATE: 20220103
